FAERS Safety Report 9783054 (Version 3)
Quarter: 2014Q1

REPORT INFORMATION
  Report Type: Spontaneous
  Country: JP (occurrence: JP)
  Receive Date: 20131226
  Receipt Date: 20140305
  Transmission Date: 20141002
  Serious: Yes (Death, Other)
  Sender: FDA-Public Use
  Company Number: JP-009507513-1312JPN010325

PATIENT
  Age: 70 Year
  Sex: Male

DRUGS (4)
  1. EMEND [Suspect]
     Indication: PROPHYLAXIS OF NAUSEA AND VOMITING
     Route: 048
  2. CARBOPLATIN [Suspect]
     Indication: SQUAMOUS CELL CARCINOMA OF LUNG
     Route: 042
  3. PACLITAXEL [Suspect]
     Indication: SQUAMOUS CELL CARCINOMA OF LUNG
     Route: 042
  4. RANITIDINE HYDROCHLORIDE [Concomitant]

REACTIONS (2)
  - Lung squamous cell carcinoma metastatic [Fatal]
  - Toxic epidermal necrolysis [Recovered/Resolved]
